FAERS Safety Report 10756632 (Version 1)
Quarter: 2015Q1

REPORT INFORMATION
  Report Type: Other
  Country: US (occurrence: US)
  Receive Date: 20150202
  Receipt Date: 20150202
  Transmission Date: 20150721
  Serious: Yes (Death)
  Sender: FDA-Public Use
  Company Number: US-FRI-1000074198

PATIENT
  Age: 34 Year
  Sex: Female

DRUGS (5)
  1. IBUPROFEN. [Suspect]
     Active Substance: IBUPROFEN
  2. ASENAPINE [Suspect]
     Active Substance: ASENAPINE
  3. DIPHENHYDRAMINE [Suspect]
     Active Substance: DIPHENHYDRAMINE
  4. ACETAMINOPHEN/PHENYLEPHRINE [Suspect]
     Active Substance: ACETAMINOPHEN\PHENYLEPHRINE
  5. ACETAMINOPHEN/DEXTROMETHORPHAN/DOXYLAMINE/PSEUDOEPHEDRINE [Suspect]
     Active Substance: ACETAMINOPHEN\DEXTROMETHORPHAN\DOXYLAMINE\PSEUDOEPHEDRINE

REACTIONS (1)
  - Completed suicide [Fatal]
